FAERS Safety Report 12659593 (Version 1)
Quarter: 2016Q3

REPORT INFORMATION
  Report Type: Spontaneous
  Country: US (occurrence: None)
  Receive Date: 20160816
  Receipt Date: 20160816
  Transmission Date: 20161109
  Serious: No
  Sender: FDA-Public Use
  Company Number: None

PATIENT
  Age: 68 Year
  Sex: Male
  Weight: 103.1 kg

DRUGS (1)
  1. F-FLUOROURACIL (5-FU) [Suspect]
     Active Substance: FLUOROURACIL
     Dates: start: 20160801, end: 20160812

REACTIONS (2)
  - Blood potassium decreased [None]
  - Diarrhoea [None]

NARRATIVE: CASE EVENT DATE: 20160815
